FAERS Safety Report 7114636-0 (Version None)
Quarter: 2010Q4

REPORT INFORMATION
  Report Type: 
  Country: None (occurrence: None)
  Receive Date: 20101121
  Receipt Date: 20101116
  Transmission Date: 20110411
  Serious: Yes (Hospitalization, Other)
  Sender: FDA-Public Use
  Company Number: US-BRISTOL-MYERS SQUIBB COMPANY-15391493

PATIENT
  Age: 55 Year
  Sex: Male
  Weight: 61 kg

DRUGS (8)
  1. CETUXIMAB [Suspect]
     Indication: METASTATIC SQUAMOUS CELL CARCINOMA
     Route: 042
     Dates: start: 20101108
  2. CISPLATIN [Suspect]
     Indication: METASTATIC SQUAMOUS CELL CARCINOMA
     Route: 042
     Dates: start: 20101101
  3. FLUOROURACIL [Suspect]
     Indication: METASTATIC SQUAMOUS CELL CARCINOMA
     Route: 042
     Dates: start: 20101101
  4. DEXAMETHASONE [Concomitant]
     Indication: INFLAMMATION
     Dosage: 2X/DAY ON DAYS 2-4 POST CHEMO
     Route: 048
  5. EMEND [Concomitant]
     Indication: NAUSEA
     Dosage: TAKEN ON DAYS 2 AND 3 OF CHEMO,125 MG TAKEN ON DAY OF CHEMO
     Route: 065
  6. ZOFRAN [Concomitant]
     Indication: NAUSEA
     Dosage: ONCE EVERY 8 HOURS
     Route: 048
  7. HYDROCODONE [Concomitant]
     Indication: COUGH
     Dosage: 4X/DAY
     Route: 048
  8. MAALOX [Concomitant]

REACTIONS (4)
  - ABDOMINAL PAIN UPPER [None]
  - BLOOD CREATININE INCREASED [None]
  - DEHYDRATION [None]
  - DYSPEPSIA [None]
